FAERS Safety Report 25284705 (Version 2)
Quarter: 2025Q2

REPORT INFORMATION
  Report Type: Spontaneous
  Country: US (occurrence: US)
  Receive Date: 20250508
  Receipt Date: 20250529
  Transmission Date: 20250716
  Serious: No
  Sender: BAUSCH AND LOMB
  Company Number: US-BAUSCH-BL-2025-005712

PATIENT
  Sex: Female

DRUGS (1)
  1. JUBLIA [Suspect]
     Active Substance: EFINACONAZOLE
     Indication: Nail disorder
     Route: 061
     Dates: start: 202504, end: 202504

REACTIONS (5)
  - Drug hypersensitivity [Recovering/Resolving]
  - Nail cuticle fissure [Recovering/Resolving]
  - Off label use [Unknown]
  - Product administered at inappropriate site [Unknown]
  - Product prescribing error [Unknown]

NARRATIVE: CASE EVENT DATE: 20250401
